FAERS Safety Report 4997966-8 (Version None)
Quarter: 2006Q2

REPORT INFORMATION
  Report Type: 
  Country: None (occurrence: None)
  Receive Date: 20060510
  Receipt Date: 20060410
  Transmission Date: 20061013
  Serious: Yes (Hospitalization, Other)
  Sender: FDA-Public Use
  Company Number: 2006UW06359

PATIENT
  Age: 82 Year
  Sex: Female

DRUGS (6)
  1. CRESTOR [Suspect]
     Indication: BLOOD CHOLESTEROL
     Route: 048
     Dates: start: 20040109, end: 20060403
  2. ADALAT [Concomitant]
     Indication: BLOOD PRESSURE ABNORMAL
  3. ASPIRIN [Concomitant]
  4. MAX EPA [Concomitant]
  5. DILANTIN [Concomitant]
  6. SYNTHROID [Concomitant]

REACTIONS (8)
  - ALANINE AMINOTRANSFERASE INCREASED [None]
  - ASPARTATE AMINOTRANSFERASE INCREASED [None]
  - BLOOD CREATINE PHOSPHOKINASE INCREASED [None]
  - BLOOD LACTATE DEHYDROGENASE INCREASED [None]
  - C-REACTIVE PROTEIN INCREASED [None]
  - COORDINATION ABNORMAL [None]
  - MYOPATHY [None]
  - URINARY TRACT INFECTION [None]
